FAERS Safety Report 21798570 (Version 4)
Quarter: 2023Q1

REPORT INFORMATION
  Report Type: Report from Study
  Country: IN (occurrence: IN)
  Receive Date: 20221230
  Receipt Date: 20230324
  Transmission Date: 20230417
  Serious: Yes (Other)
  Sender: FDA-Public Use
  Company Number: IN-002147023-NVSC2021IN299939

PATIENT
  Age: 62 Year
  Sex: Female

DRUGS (11)
  1. RIBOCICLIB [Suspect]
     Active Substance: RIBOCICLIB
     Indication: Breast cancer metastatic
     Dosage: 400 MG, QD
     Route: 048
     Dates: start: 20200930
  2. RIBOCICLIB [Suspect]
     Active Substance: RIBOCICLIB
     Indication: Renal cell carcinoma
     Dosage: 600 MG, QD
     Route: 065
     Dates: start: 20201001, end: 20201125
  3. RIBOCICLIB [Suspect]
     Active Substance: RIBOCICLIB
     Dosage: 400 MG, QD
     Route: 065
     Dates: start: 20201126
  4. RIBOCICLIB [Suspect]
     Active Substance: RIBOCICLIB
     Dosage: 400 MG, QD
     Route: 065
     Dates: start: 202202
  5. RIBOCICLIB [Suspect]
     Active Substance: RIBOCICLIB
     Dosage: 400 MG, QD
     Route: 065
     Dates: start: 202204
  6. RIBOCICLIB [Suspect]
     Active Substance: RIBOCICLIB
     Dosage: 400 MG, QD (400 MG OD FOR 21 DAYS AND 7 DAYS OFF)
     Route: 048
     Dates: start: 20221025
  7. RIBOCICLIB [Suspect]
     Active Substance: RIBOCICLIB
     Dosage: 400 MG, QD (400 MG OD FOR 21 DAYS AND 7 DAYS OFF)
     Route: 048
     Dates: start: 20221121, end: 20221219
  8. RIBOCICLIB [Suspect]
     Active Substance: RIBOCICLIB
     Dosage: 400 MG, QD (400MG OD FOR 21 DAYS AND 7 DAYS OFF)
     Route: 065
     Dates: start: 20221220
  9. RIBOCICLIB [Suspect]
     Active Substance: RIBOCICLIB
     Dosage: 400 MG, QD (400MG OD FOR 21 DAYS AND 7 DAYS OFF)
     Route: 048
     Dates: start: 20230118
  10. RIBOCICLIB [Suspect]
     Active Substance: RIBOCICLIB
     Dosage: 400 MG, QD (FOR 21 DAYS AND 7 DAYS OFF)
     Route: 065
     Dates: start: 20230215
  11. RIBOCICLIB [Suspect]
     Active Substance: RIBOCICLIB
     Dosage: 400 MG, QD (400 MG, QD (FOR 21 DAYS AND 7 DAYS OFF))
     Route: 048
     Dates: start: 20230315

REACTIONS (8)
  - Pulmonary fibrosis [Unknown]
  - Renal cyst [Unknown]
  - Pleural effusion [Unknown]
  - Scleral deposits [Unknown]
  - Thyroid mass [Unknown]
  - Neutropenia [Recovered/Resolved]
  - Pleural effusion [Recovered/Resolved]
  - Drug intolerance [Unknown]

NARRATIVE: CASE EVENT DATE: 20201201
